FAERS Safety Report 14104315 (Version 1)
Quarter: 2017Q4

REPORT INFORMATION
  Report Type: Spontaneous
  Country: US (occurrence: US)
  Receive Date: 20171018
  Receipt Date: 20171018
  Transmission Date: 20180321
  Serious: No
  Sender: FDA-Public Use
  Company Number: US-AMGEN-USASP2017106461

PATIENT
  Age: 63 Year
  Sex: Female

DRUGS (5)
  1. PROLIA [Suspect]
     Active Substance: DENOSUMAB
     Indication: PRODUCT USED FOR UNKNOWN INDICATION
     Dosage: 60 MG, UNK
     Route: 065
     Dates: start: 201609
  2. LOSARTAN. [Concomitant]
     Active Substance: LOSARTAN
     Indication: HYPERTENSION
     Dosage: 25 MG, UNK
  3. PULMICORT TURBUHALER [Concomitant]
     Active Substance: BUDESONIDE
     Indication: ASTHMA
  4. ALBUTEROL. [Concomitant]
     Active Substance: ALBUTEROL
  5. VITAMIN D [Concomitant]
     Active Substance: CHOLECALCIFEROL
     Dosage: 50000 IU, EVERY OTHER WEEK

REACTIONS (15)
  - Gastrooesophageal reflux disease [Unknown]
  - Skin sensitisation [Unknown]
  - Paraesthesia [Unknown]
  - Hypertension [Recovering/Resolving]
  - Hyperhidrosis [Unknown]
  - Constipation [Unknown]
  - Dizziness [Recovering/Resolving]
  - Eczema [Recovered/Resolved]
  - Musculoskeletal chest pain [Recovered/Resolved]
  - Costochondritis [Recovered/Resolved]
  - Feeling abnormal [Recovering/Resolving]
  - Skin atrophy [Unknown]
  - Feeling hot [Unknown]
  - Increased tendency to bruise [Unknown]
  - Influenza like illness [Recovering/Resolving]
